FAERS Safety Report 9915020 (Version 3)
Quarter: 2014Q1

REPORT INFORMATION
  Report Type: Report from Study
  Country: US (occurrence: US)
  Receive Date: 20140220
  Receipt Date: 20140307
  Transmission Date: 20141002
  Serious: Yes (Hospitalization)
  Sender: FDA-Public Use
  Company Number: PHEH2014US003191

PATIENT
  Age: 39 Year
  Sex: Female
  Weight: 52.15 kg

DRUGS (7)
  1. TOBI [Suspect]
     Indication: CYSTIC FIBROSIS
     Dosage: 112 MG, BID FOR 28 DAYS
     Route: 055
  2. TOBI PODHALER [Suspect]
     Indication: CYSTIC FIBROSIS
     Dosage: 112 MG, BID
     Route: 055
     Dates: start: 201312
  3. PULMOZYME [Concomitant]
     Dosage: UNK UKN, UNK
  4. CREON [Concomitant]
     Dosage: UNK UKN, UNK
  5. ADVAIR [Concomitant]
     Dosage: UNK UKN, UNK
  6. AZITHROMAX [Concomitant]
     Dosage: UNK UKN, UNK
  7. ALBUTEROL [Concomitant]
     Dosage: UNK UKN, UNK

REACTIONS (2)
  - Infective pulmonary exacerbation of cystic fibrosis [Recovered/Resolved]
  - Weight decreased [Recovered/Resolved]
